FAERS Safety Report 21769331 (Version 2)
Quarter: 2023Q1

REPORT INFORMATION
  Report Type: Spontaneous
  Country: NO (occurrence: NO)
  Receive Date: 20221223
  Receipt Date: 20230104
  Transmission Date: 20230418
  Serious: Yes (Hospitalization, Other)
  Sender: FDA-Public Use
  Company Number: NO-JNJFOC-20221240704

PATIENT
  Age: 42 Year
  Sex: Female

DRUGS (2)
  1. SPRAVATO [Suspect]
     Active Substance: ESKETAMINE
     Indication: Product used for unknown indication
     Dosage: FOR 4 WEEKS
     Dates: start: 202108
  2. SPRAVATO [Suspect]
     Active Substance: ESKETAMINE
     Dosage: 2ND DOSE
     Dates: start: 20220830

REACTIONS (5)
  - Ketoacidosis [Unknown]
  - Myocardial infarction [Unknown]
  - Pneumonia [Unknown]
  - Loss of consciousness [Unknown]
  - Hypoglycaemia [Unknown]

NARRATIVE: CASE EVENT DATE: 20210101
